FAERS Safety Report 8812485 (Version 1)
Quarter: 2012Q4

REPORT INFORMATION
  Report Type: 
  Country: US (occurrence: US)
  Receive Date: 20120927
  Receipt Date: 20120927
  Transmission Date: 20130627
  Serious: No
  Sender: FDA-Public Use
  Company Number: US-VERTEX PHARMACEUTICAL INC.-2012-020393

PATIENT
  Sex: Male
  Weight: 93.88 kg

DRUGS (3)
  1. INCIVEK [Suspect]
     Indication: HEPATITIS C
     Dosage: 750 mg, tid
     Route: 048
     Dates: start: 20120627
  2. PEGASYS [Concomitant]
     Dosage: 180 ?g, UNK
     Route: 058
     Dates: start: 20120627
  3. RIBAVIRIN [Concomitant]
     Indication: HEPATITIS C
     Dosage: 600 mg, bid
     Route: 048
     Dates: start: 20120627

REACTIONS (1)
  - Drug dose omission [Recovered/Resolved]
